FAERS Safety Report 12285031 (Version 2)
Quarter: 2016Q3

REPORT INFORMATION
  Report Type: Report from Study
  Country: US (occurrence: US)
  Receive Date: 20160420
  Receipt Date: 20160907
  Transmission Date: 20161109
  Serious: No
  Sender: FDA-Public Use
  Company Number: PHEH2015US007469

PATIENT
  Age: 34 Year
  Sex: Male
  Weight: 90.71 kg

DRUGS (2)
  1. GILENYA [Suspect]
     Active Substance: FINGOLIMOD HYDROCHLORIDE
     Dosage: 1 MG (TOOK 2 PILLS), QD
     Route: 048
     Dates: start: 20160831, end: 20160831
  2. GILENYA [Suspect]
     Active Substance: FINGOLIMOD HYDROCHLORIDE
     Indication: MULTIPLE SCLEROSIS
     Dosage: 0.5 MG, QD
     Route: 048
     Dates: start: 20141222

REACTIONS (5)
  - Memory impairment [Unknown]
  - Feeling abnormal [Unknown]
  - Headache [Recovering/Resolving]
  - Insomnia [Unknown]
  - Extra dose administered [Unknown]

NARRATIVE: CASE EVENT DATE: 20160831
